FAERS Safety Report 20691614 (Version 1)
Quarter: 2022Q2

REPORT INFORMATION
  Report Type: Spontaneous
  Country: MX (occurrence: None)
  Receive Date: 20220408
  Receipt Date: 20220408
  Transmission Date: 20220721
  Serious: Yes (Other)
  Sender: FDA-Public Use
  Company Number: MX-ROCHE-3070252

PATIENT
  Sex: Female
  Weight: 104 kg

DRUGS (10)
  1. TRASTUZUMAB [Suspect]
     Active Substance: TRASTUZUMAB
     Indication: Breast cancer
     Route: 065
     Dates: start: 20161228, end: 20170412
  2. TRASTUZUMAB [Suspect]
     Active Substance: TRASTUZUMAB
     Route: 065
     Dates: end: 20180418
  3. TRASTUZUMAB [Suspect]
     Active Substance: TRASTUZUMAB
     Route: 065
     Dates: start: 20200923, end: 20210107
  4. TRASTUZUMAB [Suspect]
     Active Substance: TRASTUZUMAB
     Route: 065
     Dates: end: 20220223
  5. PERTUZUMAB [Suspect]
     Active Substance: PERTUZUMAB
     Indication: Breast cancer
     Route: 065
     Dates: end: 20220223
  6. DOCETAXEL [Concomitant]
     Active Substance: DOCETAXEL
     Indication: Breast cancer
     Dosage: 6 CYLES
     Dates: start: 20161228, end: 20170412
  7. LETROZOLE [Concomitant]
     Active Substance: LETROZOLE
     Dates: end: 20170929
  8. EXEMESTANE [Concomitant]
     Active Substance: EXEMESTANE
     Dates: start: 20200908
  9. ZOLEDRONIC ACID [Concomitant]
     Active Substance: ZOLEDRONIC ACID
     Route: 042
     Dates: start: 20200908
  10. PACLITAXEL [Concomitant]
     Active Substance: PACLITAXEL
     Indication: Breast cancer
     Dosage: 6 CYCLES
     Dates: start: 20200923, end: 20210107

REACTIONS (3)
  - Disease progression [Unknown]
  - Metastases to bone [Unknown]
  - Drug ineffective [Unknown]
